FAERS Safety Report 9812371 (Version 1)
Quarter: 2014Q1

REPORT INFORMATION
  Report Type: Spontaneous
  Country: US (occurrence: US)
  Receive Date: 20140113
  Receipt Date: 20140113
  Transmission Date: 20141002
  Serious: Yes (Hospitalization, Other)
  Sender: FDA-Public Use
  Company Number: US-009507513-1401USA002973

PATIENT
  Age: 80 Year
  Sex: Female

DRUGS (6)
  1. FOSAMAX [Suspect]
     Indication: BLOOD CHOLESTEROL INCREASED
     Dosage: ONCE WEEKLY TABLET 70MG
     Route: 048
     Dates: end: 201303
  2. FOSAMAX [Suspect]
     Dosage: ONCE WEEKLY TABLET 70MG
     Route: 048
  3. ALPRAZOLAM [Concomitant]
  4. PRINIVIL [Concomitant]
     Route: 048
  5. ASPIRIN [Concomitant]
  6. PLAVIX [Concomitant]

REACTIONS (11)
  - Transient ischaemic attack [Recovered/Resolved]
  - Cerebrovascular accident [Unknown]
  - Bone density decreased [Recovered/Resolved]
  - Spinal pain [Recovered/Resolved]
  - Skin burning sensation [Recovered/Resolved]
  - Weight decreased [Recovered/Resolved]
  - Atrial fibrillation [Recovered/Resolved]
  - Pain in extremity [Recovered/Resolved]
  - Musculoskeletal pain [Recovered/Resolved]
  - Myalgia [Recovered/Resolved]
  - Blood cholesterol increased [Recovered/Resolved]
